FAERS Safety Report 5572465-3 (Version None)
Quarter: 2007Q4

REPORT INFORMATION
  Report Type: 
  Country: None (occurrence: None)
  Receive Date: 20071222
  Receipt Date: 20071211
  Transmission Date: 20080405
  Serious: Yes (Other)
  Sender: FDA-Public Use
  Company Number: US-PFIZER INC-2007105541

PATIENT
  Sex: Female
  Weight: 76.363 kg

DRUGS (8)
  1. DILANTIN [Suspect]
     Indication: CONVULSION
     Route: 048
     Dates: start: 19620101, end: 20071101
  2. DILANTIN [Suspect]
     Indication: EPILEPSY
  3. ANTIEPILEPTICS [Suspect]
     Indication: EPILEPSY
  4. PHENOBARBITAL TAB [Concomitant]
  5. ANTIHYPERTENSIVES [Concomitant]
  6. ALL OTHER THERAPEUTIC PRODUCTS [Concomitant]
  7. METOPROLOL [Concomitant]
  8. PREMARIN [Concomitant]

REACTIONS (8)
  - ALOPECIA [None]
  - CONVULSION [None]
  - DYSPHAGIA [None]
  - HYPERTENSION [None]
  - MALAISE [None]
  - NAUSEA [None]
  - URTICARIA [None]
  - VOMITING [None]
